FAERS Safety Report 5241980-4 (Version None)
Quarter: 2007Q1

REPORT INFORMATION
  Report Type: 
  Country: None (occurrence: None)
  Receive Date: 20070220
  Receipt Date: 20070208
  Transmission Date: 20070707
  Serious: Yes (Other)
  Sender: FDA-Public Use
  Company Number: US-PFIZER INC-2007011032

PATIENT
  Sex: Female

DRUGS (3)
  1. LIPITOR [Suspect]
     Indication: BLOOD CHOLESTEROL
  2. HYZAAR [Concomitant]
  3. COREG [Concomitant]

REACTIONS (3)
  - HEPATIC CYST [None]
  - MUSCULOSKELETAL CHEST PAIN [None]
  - URINARY TRACT INFECTION [None]
